FAERS Safety Report 14219431 (Version 1)
Quarter: 2017Q4

REPORT INFORMATION
  Report Type: Spontaneous
  Country: US (occurrence: US)
  Receive Date: 20171123
  Receipt Date: 20171123
  Transmission Date: 20180321
  Serious: Yes (Hospitalization)
  Sender: FDA-Public Use
  Company Number: US-JNJFOC-20170922488

PATIENT
  Age: 54 Year
  Sex: Female
  Weight: 90.72 kg

DRUGS (3)
  1. DURAGESIC [Suspect]
     Active Substance: FENTANYL
     Indication: PAIN
     Route: 062
     Dates: start: 2017, end: 2017
  2. DURAGESIC [Suspect]
     Active Substance: FENTANYL
     Indication: PAIN
     Route: 062
     Dates: start: 2017, end: 2017
  3. DURAGESIC [Suspect]
     Active Substance: FENTANYL
     Indication: PAIN
     Dosage: TWO 50MCG/HR PATCHES
     Route: 062
     Dates: start: 20170920

REACTIONS (6)
  - Incorrect dose administered [Unknown]
  - Drug dose omission [Unknown]
  - Wrong technique in product usage process [Unknown]
  - Product adhesion issue [Unknown]
  - Withdrawal syndrome [Unknown]
  - Pain [Unknown]

NARRATIVE: CASE EVENT DATE: 2017
